FAERS Safety Report 6585716-3 (Version None)
Quarter: 2010Q1

REPORT INFORMATION
  Report Type: 
  Country: None (occurrence: None)
  Receive Date: 20100201
  Receipt Date: 20100121
  Transmission Date: 20100710
  Serious: Yes (Other)
  Sender: FDA-Public Use
  Company Number: 2010S1000520

PATIENT
  Sex: Male

DRUGS (7)
  1. PHOSPHOSODA FLAVOR NOT SPECIFIED [Suspect]
     Indication: COLONOSCOPY
     Dosage: PO
     Route: 048
     Dates: start: 20080101
  2. LEVOTHYROXINE SODIUM [Concomitant]
  3. POPIC [Concomitant]
  4. ZOCOR [Concomitant]
  5. ASPIRIN [Concomitant]
  6. GLYBURIDE [Concomitant]
  7. METFORMIN HYDROCHLORIDE [Concomitant]

REACTIONS (1)
  - RENAL DISORDER [None]
